FAERS Safety Report 8810939 (Version 1)
Quarter: 2012Q4

REPORT INFORMATION
  Report Type: Spontaneous
  Country: GB (occurrence: None)
  Receive Date: 20121004
  Receipt Date: 20121004
  Transmission Date: 20130627
  Serious: Yes (Other)
  Sender: FDA-Public Use
  Company Number: GER/UKI/12/0025914

PATIENT
  Age: 78 Year
  Sex: Female
  Weight: 50 kg

DRUGS (6)
  1. RISPERIDONE [Suspect]
     Indication: SCHIZOPHRENIA
     Route: 048
     Dates: end: 20120518
  2. RISPERIDONE [Suspect]
     Indication: SCHIZOPHRENIA
     Route: 048
     Dates: start: 20120606
  3. RISPERIDONE [Suspect]
     Indication: SCHIZOPHRENIA
     Route: 048
  4. XEPLION [Suspect]
     Indication: SCHIZOPHRENIA
     Route: 030
  5. XEPLION [Suspect]
     Indication: SCHIZOPHRENIA
     Route: 030
     Dates: start: 20120518
  6. XEPLION [Suspect]
     Indication: SCHIZOPHRENIA
     Route: 030
     Dates: start: 20120615

REACTIONS (7)
  - Inappropriate schedule of drug administration [None]
  - Incorrect dose administered [None]
  - Psychotic disorder [None]
  - Renal impairment [None]
  - Therapeutic response decreased [None]
  - Drug ineffective [None]
  - Refusal of treatment by patient [None]
